FAERS Safety Report 12968273 (Version 1)
Quarter: 2016Q4

REPORT INFORMATION
  Report Type: Spontaneous
  Country: JP (occurrence: JP)
  Receive Date: 20161123
  Receipt Date: 20161123
  Transmission Date: 20170207
  Serious: Yes (Hospitalization)
  Sender: FDA-Public Use
  Company Number: JP-BAYER-2016-220875

PATIENT
  Age: 39 Year
  Sex: Female

DRUGS (4)
  1. ACETYLSALICYLIC ACID({=100 MG) [Suspect]
     Active Substance: ASPIRIN
     Dosage: UNK
     Route: 048
  2. CAPROCIN [Concomitant]
     Dosage: DAILY DOSE 20000 U
     Route: 058
  3. CLOMIFENE CITRATE [Concomitant]
     Active Substance: CLOMIPHENE
     Indication: OVULATION INDUCTION
     Dosage: UNK
     Route: 048
  4. HEPARIN [Concomitant]
     Active Substance: HEPARIN SODIUM
     Dosage: DAILY DOSE 10000 U
     Route: 058

REACTIONS (3)
  - Maternal exposure during pregnancy [Recovered/Resolved]
  - Deep vein thrombosis [Recovered/Resolved]
  - Premature labour [None]
